FAERS Safety Report 5087487-9 (Version None)
Quarter: 2006Q3

REPORT INFORMATION
  Report Type: 
  Country: None (occurrence: None)
  Receive Date: 20060821
  Receipt Date: 20060810
  Transmission Date: 20061208
  Serious: Yes (Other)
  Sender: FDA-Public Use
  Company Number: 2006097792

PATIENT
  Age: 52 Year
  Sex: Female

DRUGS (13)
  1. VIRACEPT [Suspect]
     Indication: HIV INFECTION
     Dosage: 650 MG
  2. ZERIT [Concomitant]
  3. LISINOPRIL [Concomitant]
  4. PRILOSEC [Concomitant]
  5. NEURONTIN [Concomitant]
  6. ULTRACET [Concomitant]
  7. HYDROXYZINE [Concomitant]
  8. TIZANIDINE HCL [Concomitant]
  9. COVERA-HS [Concomitant]
  10. VIRAMUNE [Concomitant]
  11. EPIVIR [Concomitant]
  12. ALPRAZOLAM [Concomitant]
  13. QUININE SULFATE [Concomitant]

REACTIONS (2)
  - FOREIGN BODY TRAUMA [None]
  - OESOPHAGEAL STENOSIS [None]
